FAERS Safety Report 24889200 (Version 3)
Quarter: 2025Q1

REPORT INFORMATION
  Report Type: Spontaneous
  Country: DE (occurrence: DE)
  Receive Date: 20250127
  Receipt Date: 20250303
  Transmission Date: 20250409
  Serious: Yes (Death, Life-Threatening, Hospitalization, Other)
  Sender: SANOFI AVENTIS
  Company Number: DE-SANOFI-02380431

PATIENT
  Age: 54 Year
  Sex: Female

DRUGS (8)
  1. AUBAGIO [Suspect]
     Active Substance: TERIFLUNOMIDE
     Indication: Relapsing-remitting multiple sclerosis
     Dosage: 14 MG, QD
     Route: 048
     Dates: start: 202305, end: 202501
  2. FRAGMIN [Concomitant]
     Active Substance: DALTEPARIN SODIUM
     Dosage: UNK UNK, QD
     Dates: start: 20250115
  3. CALCIUM CHLORIDE\MAGNESIUM CHLORIDE\POTASSIUM CHLORIDE\SODIUM ACETATE\ [Concomitant]
     Active Substance: CALCIUM CHLORIDE\MAGNESIUM CHLORIDE\POTASSIUM CHLORIDE\SODIUM ACETATE\SODIUM CHLORIDE
     Dates: start: 20250115
  4. FUROSEMIDE [Concomitant]
     Active Substance: FUROSEMIDE
  5. TORSEMIDE [Concomitant]
     Active Substance: TORSEMIDE
     Dosage: UNK UNK, QD
     Dates: start: 20250116
  6. METAMIZOLE SODIUM [Concomitant]
     Active Substance: METAMIZOLE SODIUM
     Dosage: 2 DF, QID
     Dates: start: 20250115
  7. PREGABALIN [Concomitant]
     Active Substance: PREGABALIN
     Dosage: 2 DF, BID
     Dates: start: 20250115
  8. AMITRIPTYLINE HYDROCHLORIDE [Concomitant]
     Active Substance: AMITRIPTYLINE HYDROCHLORIDE
     Dosage: UNK UNK, QD
     Dates: start: 20250115

REACTIONS (17)
  - Metastatic neoplasm [Fatal]
  - Metastatic bronchial carcinoma [Fatal]
  - Non-small cell lung cancer metastatic [Unknown]
  - EGFR gene mutation [Unknown]
  - Hypokalaemia [Unknown]
  - Metastatic squamous cell carcinoma [Unknown]
  - Metastases to bone [Unknown]
  - Brain oedema [Unknown]
  - Metastases to lung [Unknown]
  - Cerebral haemorrhage [Unknown]
  - Delirium [Unknown]
  - Hypercalcaemia of malignancy [Unknown]
  - Humerus fracture [Unknown]
  - Pleural effusion [Unknown]
  - General physical health deterioration [Unknown]
  - Dyspnoea exertional [Unknown]
  - Arthralgia [Unknown]

NARRATIVE: CASE EVENT DATE: 20241101
